FAERS Safety Report 8747295 (Version 2)
Quarter: 2012Q4

REPORT INFORMATION
  Report Type: 
  Country: IT (occurrence: IT)
  Receive Date: 20120830
  Receipt Date: 20120905
  Transmission Date: 20130627
  Serious: Yes (Hospitalization, Other)
  Sender: FDA-Public Use
  Company Number: IT-PFIZER INC-2012207155

PATIENT
  Age: 84 Year
  Sex: Male

DRUGS (6)
  1. RAMIPRIL [Suspect]
     Indication: HYPERTENSION
     Dosage: 5 mg, daily
     Route: 048
     Dates: start: 20110516, end: 20120515
  2. LUVION [Suspect]
     Indication: HYPERTENSION
     Dosage: 50 mg, alternate day
     Route: 048
     Dates: start: 20110516, end: 20120515
  3. LANTUS [Concomitant]
     Dosage: UNK
  4. APIDRA [Concomitant]
     Dosage: UNK
  5. ACETYLSALICYLIC ACID [Concomitant]
     Dosage: UNK
  6. SIMVASTATIN [Concomitant]
     Dosage: UNK

REACTIONS (4)
  - Renal failure [Unknown]
  - Nodal arrhythmia [Unknown]
  - Hyperkalaemia [Unknown]
  - Hypertrophic cardiomyopathy [Unknown]
